FAERS Safety Report 15065900 (Version 2)
Quarter: 2018Q3

REPORT INFORMATION
  Report Type: Report from Study
  Country: US (occurrence: US)
  Receive Date: 20180626
  Receipt Date: 20180719
  Transmission Date: 20181010
  Serious: Yes (Hospitalization, Other)
  Sender: FDA-Public Use
  Company Number: US-GILEAD-2018-0346721

PATIENT
  Age: 58 Year
  Sex: Female

DRUGS (12)
  1. MERCAPTOPURINE. [Concomitant]
     Active Substance: MERCAPTOPURINE
  2. PEG?3350 AND ELECTROLYTES [Concomitant]
     Active Substance: POLYETHYLENE GLYCOL 3350\POTASSIUM CHLORIDE\SODIUM BICARBONATE\SODIUM CHLORIDE\SODIUM SULFATE\SODIUM SULFATE ANHYDROUS
  3. BYSTOLIC [Concomitant]
     Active Substance: NEBIVOLOL HYDROCHLORIDE
  4. PROMETHAZINE ? CODEINE             /01129901/ [Concomitant]
  5. ANUCORT?HC [Concomitant]
     Active Substance: HYDROCORTISONE ACETATE
  6. PREDNISONE. [Concomitant]
     Active Substance: PREDNISONE
  7. RANITIDINE. [Concomitant]
     Active Substance: RANITIDINE
  8. ATORVASTATIN [Concomitant]
     Active Substance: ATORVASTATIN
  9. METRONIDAZOLE. [Concomitant]
     Active Substance: METRONIDAZOLE
  10. AMBRISENTAN [Suspect]
     Active Substance: AMBRISENTAN
     Indication: PULMONARY ARTERIAL HYPERTENSION
     Dosage: 5 MG, QD
     Route: 065
     Dates: start: 20171228
  11. AMOXICILLIN AND CLAVULANATE POTASSIUM [Concomitant]
     Active Substance: AMOXICILLIN\CLAVULANATE POTASSIUM
  12. MESALAMINE. [Concomitant]
     Active Substance: MESALAMINE

REACTIONS (2)
  - Clostridium difficile infection [Recovered/Resolved]
  - Colitis ulcerative [Recovered/Resolved]

NARRATIVE: CASE EVENT DATE: 20180531
